FAERS Safety Report 21687570 (Version 1)
Quarter: 2022Q4

REPORT INFORMATION
  Report Type: Spontaneous
  Country: US (occurrence: None)
  Receive Date: 20221206
  Receipt Date: 20221206
  Transmission Date: 20230113
  Serious: No
  Sender: FDA-Public Use
  Company Number: 2022A387956

PATIENT

DRUGS (2)
  1. SYMBICORT [Suspect]
     Active Substance: BUDESONIDE\FORMOTEROL FUMARATE DIHYDRATE
     Indication: Asthma
     Dosage: UNKNOWN
     Route: 055
  2. PREDNISONE [Concomitant]
     Active Substance: PREDNISONE
     Route: 065

REACTIONS (13)
  - Product use issue [Unknown]
  - Wheezing [Unknown]
  - Nasal congestion [Unknown]
  - Asthenia [Unknown]
  - Device delivery system issue [Unknown]
  - Therapeutic product effect decreased [Unknown]
  - Dysphonia [Unknown]
  - Hypersensitivity [Unknown]
  - Cough [Unknown]
  - Asthma [Unknown]
  - Exposure to SARS-CoV-2 [Unknown]
  - Upper-airway cough syndrome [Unknown]
  - Sinus disorder [Unknown]
